FAERS Safety Report 11044456 (Version 2)
Quarter: 2015Q2

REPORT INFORMATION
  Report Type: Report from Study
  Country: US (occurrence: US)
  Receive Date: 20150417
  Receipt Date: 20150519
  Transmission Date: 20150821
  Serious: No
  Sender: FDA-Public Use
  Company Number: US-VERTEX PHARMACEUTICALS-2015-000971

PATIENT
  Age: 8 Year
  Sex: Female

DRUGS (1)
  1. KALYDECO [Suspect]
     Active Substance: IVACAFTOR
     Indication: CYSTIC FIBROSIS
     Dosage: 150 MG, BID
     Route: 048
     Dates: start: 20150408

REACTIONS (3)
  - Product size issue [Unknown]
  - Respiratory syncytial virus infection [Unknown]
  - Cough [Unknown]

NARRATIVE: CASE EVENT DATE: 201504
